FAERS Safety Report 11370890 (Version 2)
Quarter: 2015Q3

REPORT INFORMATION
  Report Type: Report from Study
  Country: US (occurrence: US)
  Receive Date: 20150812
  Receipt Date: 20150901
  Transmission Date: 20151125
  Serious: Yes (Other)
  Sender: FDA-Public Use
  Company Number: PHEH2015US015322

PATIENT
  Sex: Female
  Weight: 61.22 kg

DRUGS (4)
  1. GILENYA [Suspect]
     Active Substance: FINGOLIMOD HYDROCHLORIDE
     Indication: MULTIPLE SCLEROSIS
     Dosage: 0.5 MG, QD
     Route: 048
     Dates: start: 20150713
  2. LAXATIVE [Concomitant]
     Active Substance: UNSPECIFIED INGREDIENT
     Indication: PRODUCT USED FOR UNKNOWN INDICATION
     Route: 065
  3. AMITRIPTYLINE HYDROCHLORIDE. [Concomitant]
     Active Substance: AMITRIPTYLINE HYDROCHLORIDE
     Indication: PRODUCT USED FOR UNKNOWN INDICATION
     Route: 065
  4. NUVIGIL [Concomitant]
     Active Substance: ARMODAFINIL
     Indication: PRODUCT USED FOR UNKNOWN INDICATION
     Route: 065

REACTIONS (24)
  - Visual acuity reduced [Unknown]
  - Dysstasia [Unknown]
  - Radiculopathy [Unknown]
  - Paralysis [Unknown]
  - Arthralgia [Unknown]
  - Fall [Unknown]
  - Peripheral swelling [Unknown]
  - Asthenia [Unknown]
  - Neuralgia [Unknown]
  - Neuritis [Unknown]
  - Fatigue [Unknown]
  - Coordination abnormal [Unknown]
  - Muscular weakness [Unknown]
  - Paraesthesia [Unknown]
  - Hypoaesthesia [Unknown]
  - Pain in extremity [Unknown]
  - Dyspnoea exertional [Unknown]
  - Progressive multiple sclerosis [Unknown]
  - Amnesia [Unknown]
  - Band sensation [Unknown]
  - Abdominal discomfort [Unknown]
  - Muscle spasms [Unknown]
  - Central nervous system lesion [Unknown]
  - Trigeminal neuralgia [Unknown]
